FAERS Safety Report 5664437-5 (Version None)
Quarter: 2008Q1

REPORT INFORMATION
  Report Type: 
  Country: None (occurrence: None)
  Receive Date: 20080314
  Receipt Date: 20080302
  Transmission Date: 20080703
  Serious: Yes (Other)
  Sender: FDA-Public Use
  Company Number: US-AMGEN-STX267849

PATIENT
  Sex: Male

DRUGS (1)
  1. ENBREL [Suspect]
     Indication: RHEUMATOID ARTHRITIS
     Route: 065
     Dates: start: 20080111

REACTIONS (5)
  - EAR PAIN [None]
  - FACIAL PALSY [None]
  - HYPOAESTHESIA FACIAL [None]
  - TONGUE DISCOLOURATION [None]
  - TOOTHACHE [None]
